FAERS Safety Report 8775779 (Version 2)
Quarter: 2012Q4

REPORT INFORMATION
  Report Type: 
  Country: US (occurrence: US)
  Receive Date: 20120910
  Receipt Date: 20121003
  Transmission Date: 20130627
  Serious: No
  Sender: FDA-Public Use
  Company Number: US-ASTRAZENECA-2012SE60410

PATIENT
  Age: 39 Year
  Sex: Female
  Weight: 43.5 kg

DRUGS (9)
  1. SYMBICORT [Suspect]
     Indication: BRONCHITIS
     Dosage: 160/4.5MCG, TWO PUFFS BID
     Route: 055
     Dates: start: 201204, end: 201205
  2. SYMBICORT [Suspect]
     Indication: EMPHYSEMA
     Dosage: 160/4.5MCG, TWO PUFFS BID
     Route: 055
     Dates: start: 201204, end: 201205
  3. SYMBICORT [Suspect]
     Indication: DYSPNOEA
     Dosage: 160/4.5MCG, TWO PUFFS BID
     Route: 055
     Dates: start: 201204, end: 201205
  4. SYMBICORT [Suspect]
     Indication: BRONCHITIS
     Dosage: 160/4.5MCG, AS NEEDED
     Route: 055
     Dates: start: 201205
  5. SYMBICORT [Suspect]
     Indication: EMPHYSEMA
     Dosage: 160/4.5MCG, AS NEEDED
     Route: 055
     Dates: start: 201205
  6. SYMBICORT [Suspect]
     Indication: DYSPNOEA
     Dosage: 160/4.5MCG, AS NEEDED
     Route: 055
     Dates: start: 201205
  7. METOPROLOL [Concomitant]
     Indication: PALPITATIONS
  8. VITAMINS [Concomitant]
  9. PROAIR [Concomitant]

REACTIONS (3)
  - Condition aggravated [Unknown]
  - Off label use [Unknown]
  - Drug dose omission [Unknown]
